FAERS Safety Report 5144927-4 (Version None)
Quarter: 2006Q4

REPORT INFORMATION
  Report Type: 
  Country: None (occurrence: None)
  Receive Date: 20061107
  Receipt Date: 20061025
  Transmission Date: 20070319
  Serious: Yes (Hospitalization)
  Sender: FDA-Public Use
  Company Number: US-PURDUE-USA_2006_0025582

PATIENT
  Sex: Male

DRUGS (1)
  1. OXYCONTIN [Suspect]
     Indication: DRUG USE FOR UNKNOWN INDICATION
     Dosage: UNK MG, SEE TEXT
     Route: 048
     Dates: start: 20000901

REACTIONS (3)
  - ARTERIAL OCCLUSIVE DISEASE [None]
  - FEMORAL ARTERY OCCLUSION [None]
  - INTERVERTEBRAL DISC DISORDER [None]
